FAERS Safety Report 9495768 (Version 1)
Quarter: 2013Q3

REPORT INFORMATION
  Report Type: Report from Study
  Country: FR (occurrence: FR)
  Receive Date: 20130903
  Receipt Date: 20130903
  Transmission Date: 20140515
  Serious: No
  Sender: FDA-Public Use
  Company Number: PHHY2013FR092069

PATIENT
  Age: 75 Year
  Sex: Male

DRUGS (7)
  1. AMN107 [Suspect]
     Dates: start: 20110326
  2. AMN107 [Suspect]
     Dates: start: 20120720, end: 20120808
  3. AMN107 [Suspect]
     Dates: start: 20120809
  4. MONOTILDIEM [Concomitant]
  5. KENZEN [Concomitant]
     Dates: start: 2001
  6. ELISOR [Concomitant]
     Dates: start: 2003
  7. KARDEGIC [Concomitant]

REACTIONS (5)
  - Weight decreased [Unknown]
  - Cell death [Unknown]
  - Dyspepsia [Not Recovered/Not Resolved]
  - Constipation [Not Recovered/Not Resolved]
  - Neutropenia [Unknown]
